FAERS Safety Report 7377604-X (Version None)
Quarter: 2011Q1

REPORT INFORMATION
  Report Type: 
  Country: None (occurrence: None)
  Receive Date: 20110328
  Receipt Date: 20110322
  Transmission Date: 20110831
  Serious: Yes (Other)
  Sender: FDA-Public Use
  Company Number: FR-BRISTOL-MYERS SQUIBB COMPANY-15484553

PATIENT
  Age: 47 Year
  Sex: Female
  Weight: 95 kg

DRUGS (4)
  1. ACTOS [Concomitant]
     Dosage: 1 DF = 1TAB
     Route: 048
     Dates: start: 20081028
  2. METFORMINE [Concomitant]
     Dosage: 1 DF = 3TABS
     Route: 048
     Dates: start: 20080131
  3. JANUVIA [Concomitant]
     Dosage: 1 DF: 1 TABLET
     Dates: start: 20080703, end: 20100929
  4. ONGLYZA [Suspect]
     Indication: DIABETES MELLITUS
     Route: 048
     Dates: start: 20100929, end: 20101203

REACTIONS (6)
  - SINUSITIS [None]
  - ASTHMA [None]
  - VOMITING [None]
  - HEADACHE [None]
  - DIARRHOEA [None]
  - NAUSEA [None]
